FAERS Safety Report 10090079 (Version 1)
Quarter: 2014Q2

REPORT INFORMATION
  Report Type: Spontaneous
  Country: IT (occurrence: IT)
  Receive Date: 20140421
  Receipt Date: 20140421
  Transmission Date: 20141212
  Serious: Yes (Hospitalization)
  Sender: FDA-Public Use
  Company Number: PHHY2014IT044048

PATIENT
  Age: 21 Year
  Sex: Female

DRUGS (8)
  1. DICLOFENAC SANDOZ [Suspect]
     Indication: DRUG ABUSE
     Dosage: 500 MG, QD
     Route: 048
     Dates: start: 20140219, end: 20140219
  2. METFORMIN [Suspect]
     Indication: DRUG ABUSE
     Dosage: 2500 MG, QD
     Route: 048
     Dates: start: 20140219, end: 20140219
  3. METRONIDAZOLE [Suspect]
     Indication: DRUG ABUSE
     Dosage: 2500 MG, QD
     Route: 048
     Dates: start: 20140219, end: 20140219
  4. SIMVASTATINA ABC [Suspect]
     Indication: DRUG ABUSE
     Dosage: 560 MG, QD
     Route: 048
     Dates: start: 20140219, end: 20140219
  5. PLASIL [Suspect]
     Indication: DRUG ABUSE
     Dosage: 20 MG, QD
     Route: 048
     Dates: start: 20140219, end: 20140219
  6. CO EFFERALGAN [Suspect]
     Indication: DRUG ABUSE
     Dosage: 4000 ML, QD
     Dates: start: 20140219, end: 20140219
  7. RAMIPRIL ACTAVIS [Suspect]
     Indication: DRUG ABUSE
     Dosage: 20 MG, QD
     Route: 048
     Dates: start: 20140219, end: 20140219
  8. TRIMETON [Suspect]
     Indication: DRUG ABUSE
     Dosage: 40 MG, QD
     Route: 048
     Dates: start: 20140219, end: 20140219

REACTIONS (1)
  - Poisoning deliberate [Recovered/Resolved]
